FAERS Safety Report 14595425 (Version 1)
Quarter: 2018Q1

REPORT INFORMATION
  Report Type: Spontaneous
  Country: ZA (occurrence: ZA)
  Receive Date: 20180302
  Receipt Date: 20180302
  Transmission Date: 20180509
  Serious: Yes (Other)
  Sender: FDA-Public Use
  Company Number: ZA-TEVA-2018-ZA-863139

PATIENT
  Age: 67 Year
  Sex: Female

DRUGS (2)
  1. ABITREXATE [Suspect]
     Active Substance: METHOTREXATE SODIUM
     Route: 048
  2. ENBREL [Suspect]
     Active Substance: ETANERCEPT
     Route: 058

REACTIONS (3)
  - Pulmonary embolism [Unknown]
  - Sinusitis [Recovered/Resolved]
  - Pulmonary hypertension [Unknown]

NARRATIVE: CASE EVENT DATE: 201711
